FAERS Safety Report 15387588 (Version 2)
Quarter: 2018Q3

REPORT INFORMATION
  Report Type: Report from Study
  Country: US (occurrence: US)
  Receive Date: 20180914
  Receipt Date: 20180924
  Transmission Date: 20181010
  Serious: Yes (Hospitalization)
  Sender: FDA-Public Use
  Company Number: US-ACTELION-A-US2018-173240

PATIENT
  Age: 27 Year
  Sex: Female
  Weight: 58.96 kg

DRUGS (4)
  1. VELETRI [Suspect]
     Active Substance: EPOPROSTENOL
     Dosage: 6 NG/KG, PER MIN
     Route: 042
  2. VELETRI [Suspect]
     Active Substance: EPOPROSTENOL
     Dosage: 10 NG, UNK
     Route: 042
  3. VELETRI [Suspect]
     Active Substance: EPOPROSTENOL
     Indication: PULMONARY HYPERTENSION
     Dosage: 5 NG/KG, PER MIN
     Route: 042
  4. SILDENAFIL. [Concomitant]
     Active Substance: SILDENAFIL
     Dosage: 20 MG, TID

REACTIONS (16)
  - Pericardial effusion [Unknown]
  - Appetite disorder [Unknown]
  - Headache [Unknown]
  - Pain [Unknown]
  - Flushing [Unknown]
  - Pruritus [Unknown]
  - Oedema peripheral [Recovered/Resolved]
  - Cardiac failure [Unknown]
  - Erythema [Unknown]
  - Catheter site erythema [Not Recovered/Not Resolved]
  - Exposure during pregnancy [Unknown]
  - Pain in jaw [Unknown]
  - Catheter site rash [Not Recovered/Not Resolved]
  - Nausea [Not Recovered/Not Resolved]
  - Skin irritation [Unknown]
  - Condition aggravated [Unknown]

NARRATIVE: CASE EVENT DATE: 20180830
